FAERS Safety Report 10145959 (Version 1)
Quarter: 2014Q2

REPORT INFORMATION
  Report Type: Spontaneous
  Country: US (occurrence: US)
  Receive Date: 20140501
  Receipt Date: 20140501
  Transmission Date: 20141212
  Serious: No
  Sender: FDA-Public Use
  Company Number: US-009507513-1404USA014658

PATIENT
  Age: 81 Year
  Sex: Female

DRUGS (2)
  1. COZAAR [Suspect]
     Dosage: UNK
     Route: 048
  2. DIOVAN [Concomitant]
     Dosage: UNK

REACTIONS (2)
  - Drug ineffective [Unknown]
  - Hypertension [Unknown]
